FAERS Safety Report 4876788-2 (Version None)
Quarter: 2006Q1

REPORT INFORMATION
  Report Type: 
  Country: None (occurrence: None)
  Receive Date: 20060110
  Receipt Date: 20051230
  Transmission Date: 20060701
  Serious: Yes (Hospitalization, Disabling)
  Sender: FDA-Public Use
  Company Number: US-MERCK-0601USA00219

PATIENT
  Age: 39 Year
  Sex: Male
  Weight: 81 kg

DRUGS (2)
  1. VIOXX [Suspect]
     Indication: BACK PAIN
     Route: 048
     Dates: start: 20000701, end: 20010101
  2. IBUPROFEN [Concomitant]
     Route: 065

REACTIONS (3)
  - BACK PAIN [None]
  - MYOCARDIAL INFARCTION [None]
  - PNEUMONIA [None]
